FAERS Safety Report 19981714 (Version 2)
Quarter: 2021Q4

REPORT INFORMATION
  Report Type: Report from Study
  Country: JP (occurrence: JP)
  Receive Date: 20211021
  Receipt Date: 20211224
  Transmission Date: 20220303
  Serious: Yes (Other)
  Sender: FDA-Public Use
  Company Number: JP-VIIV HEALTHCARE LIMITED-JP2017JPN113161

PATIENT
  Age: 5 Decade
  Sex: Male

DRUGS (1)
  1. ABACAVIR SULFATE\DOLUTEGRAVIR SODIUM\LAMIVUDINE [Suspect]
     Active Substance: ABACAVIR SULFATE\DOLUTEGRAVIR SODIUM\LAMIVUDINE
     Indication: HIV infection
     Dosage: 1 DF, 1D
     Route: 048
     Dates: start: 20160113

REACTIONS (3)
  - Blood bilirubin increased [Recovered/Resolved]
  - Syphilis [Recovering/Resolving]
  - Syphilis [Not Recovered/Not Resolved]

NARRATIVE: CASE EVENT DATE: 20160224
